FAERS Safety Report 16066197 (Version 4)
Quarter: 2019Q3

REPORT INFORMATION
  Report Type: Report from Study
  Country: CA (occurrence: CA)
  Receive Date: 20190313
  Receipt Date: 20190916
  Transmission Date: 20191004
  Serious: Yes (Hospitalization, Other)
  Sender: FDA-Public Use
  Company Number: CA-ROCHE-2279055

PATIENT
  Age: 38 Year
  Sex: Female

DRUGS (6)
  1. OCREVUS [Suspect]
     Active Substance: OCRELIZUMAB
     Indication: RELAPSING-REMITTING MULTIPLE SCLEROSIS
     Dosage: 300 MG AT DAY 0 AND 14, THEN 600 MG EVERY 6 MONTH ;ONGOING: YES
     Route: 042
     Dates: start: 20190306
  2. FAMPYRA [Concomitant]
     Active Substance: DALFAMPRIDINE
  3. BOTOX [Concomitant]
     Active Substance: ONABOTULINUMTOXINA
  4. BACLOFEN. [Concomitant]
     Active Substance: BACLOFEN
     Indication: MUSCLE SPASTICITY
  5. OCREVUS [Suspect]
     Active Substance: OCRELIZUMAB
     Dosage: 300 MG IN 10ML X 2 VIALS,
     Route: 042
     Dates: start: 20170101
  6. MYRBETRIQ [Concomitant]
     Active Substance: MIRABEGRON

REACTIONS (6)
  - Urinary tract infection [Recovered/Resolved]
  - Heart rate increased [Not Recovered/Not Resolved]
  - Asthenia [Not Recovered/Not Resolved]
  - Tachycardia [Unknown]
  - Nasal congestion [Recovered/Resolved]
  - Tachycardia [Recovered/Resolved]

NARRATIVE: CASE EVENT DATE: 20190307
